FAERS Safety Report 18241466 (Version 1)
Quarter: 2020Q3

REPORT INFORMATION
  Report Type: Spontaneous
  Country: US (occurrence: US)
  Receive Date: 20200908
  Receipt Date: 20200908
  Transmission Date: 20201103
  Serious: No
  Sender: FDA-Public Use
  Company Number: US-SHIRE-US202028662

PATIENT
  Sex: Female
  Weight: 50 kg

DRUGS (4)
  1. LISINOPRIL. [Concomitant]
     Active Substance: LISINOPRIL
     Indication: HYPERTENSION
     Dosage: 10 MILLIGRAM, UNKNOWN
     Route: 065
  2. VYVANSE [Suspect]
     Active Substance: LISDEXAMFETAMINE DIMESYLATE
     Indication: ATTENTION DEFICIT HYPERACTIVITY DISORDER
     Dosage: 30 GRAM, 1X/DAY:QD
     Route: 048
     Dates: start: 201211
  3. CAFFEINE. [Concomitant]
     Active Substance: CAFFEINE
     Indication: PRODUCT USED FOR UNKNOWN INDICATION
     Dosage: UNK UNK, UNKNOWN
     Route: 065
  4. ADDERALL XR [Concomitant]
     Active Substance: AMPHETAMINE ASPARTATE\AMPHETAMINE SULFATE\DEXTROAMPHETAMINE SACCHARATE\DEXTROAMPHETAMINE SULFATE
     Indication: ATTENTION DEFICIT HYPERACTIVITY DISORDER
     Dosage: 10 MILLIGRAM, UNKNOWN
     Route: 065

REACTIONS (10)
  - Accidental overdose [Unknown]
  - Intentional dose omission [Unknown]
  - Menopause [Unknown]
  - Chest pain [Unknown]
  - Product storage error [Unknown]
  - Hormone level abnormal [Unknown]
  - Hypersomnia [Unknown]
  - Anger [Unknown]
  - Irritability [Unknown]
  - Drug ineffective [Unknown]
